FAERS Safety Report 6805314-3 (Version None)
Quarter: 2010Q2

REPORT INFORMATION
  Report Type: 
  Country: None (occurrence: None)
  Receive Date: 20100628
  Receipt Date: 20071105
  Transmission Date: 20101027
  Serious: No
  Sender: FDA-Public Use
  Company Number: US-PFIZER INC-2007090810

PATIENT
  Age: 39 Year
  Sex: Female

DRUGS (4)
  1. GEODON [Suspect]
  2. RISPERDAL [Concomitant]
  3. LITHIUM [Concomitant]
  4. CLONAZEPAM [Concomitant]

REACTIONS (2)
  - DRUG INEFFECTIVE [None]
  - INCORRECT DOSE ADMINISTERED [None]
